FAERS Safety Report 15075535 (Version 3)
Quarter: 2018Q3

REPORT INFORMATION
  Report Type: Spontaneous
  Country: US (occurrence: US)
  Receive Date: 20180627
  Receipt Date: 20180712
  Transmission Date: 20181010
  Serious: Yes (Hospitalization)
  Sender: FDA-Public Use
  Company Number: US-SAOL THERAPEUTICS-2018SAO00853

PATIENT
  Age: 11 Year
  Sex: Female
  Weight: 34 kg

DRUGS (2)
  1. LIORESAL [Suspect]
     Active Substance: BACLOFEN
     Indication: MUSCLE SPASTICITY
     Dosage: 1100 ?G, \DAY
     Route: 037
  2. LIORESAL [Suspect]
     Active Substance: BACLOFEN
     Indication: CEREBRAL PALSY

REACTIONS (4)
  - Hypertonia [Recovering/Resolving]
  - Wound infection [Unknown]
  - Therapeutic response decreased [Recovering/Resolving]
  - Complication associated with device [Unknown]

NARRATIVE: CASE EVENT DATE: 201203
